FAERS Safety Report 4602182-5 (Version None)
Quarter: 2005Q1

REPORT INFORMATION
  Report Type: 
  Country: None (occurrence: None)
  Receive Date: 20050308
  Receipt Date: 20050223
  Transmission Date: 20050727
  Serious: Yes (Disabling)
  Sender: FDA-Public Use
  Company Number: GB-MERCK-0502GBR00216

PATIENT
  Age: 70 Year
  Sex: Male

DRUGS (1)
  1. PROSCAR [Suspect]
     Indication: BENIGN PROSTATIC HYPERPLASIA
     Route: 048
     Dates: start: 20040601, end: 20050206

REACTIONS (4)
  - DEPRESSION [None]
  - DISTURBANCE IN ATTENTION [None]
  - EYE INFECTION [None]
  - HEADACHE [None]
